FAERS Safety Report 9152567 (Version 1)
Quarter: 2013Q1

REPORT INFORMATION
  Report Type: Spontaneous
  Country: US (occurrence: US)
  Receive Date: 20130308
  Receipt Date: 20130308
  Transmission Date: 20140127
  Serious: No
  Sender: FDA-Public Use
  Company Number: US-ENDO PHARMACEUTICALS INC.-OPCR20121007

PATIENT
  Age: 61 Year
  Sex: Male

DRUGS (3)
  1. OPANA ER 20MG [Suspect]
     Indication: PAIN
     Route: 048
     Dates: start: 20120514
  2. OPANA ER 20MG [Concomitant]
     Indication: PAIN
     Route: 048
     Dates: start: 201102, end: 20120513
  3. OXYCODONE HCL [Concomitant]
     Indication: BREAKTHROUGH PAIN
     Dosage: UNKNOWN
     Route: 048

REACTIONS (4)
  - Feeling abnormal [Unknown]
  - Feeling jittery [Unknown]
  - Insomnia [Unknown]
  - Drug ineffective [Unknown]
